FAERS Safety Report 18700643 (Version 2)
Quarter: 2021Q1

REPORT INFORMATION
  Report Type: Spontaneous
  Country: TH (occurrence: TH)
  Receive Date: 20210105
  Receipt Date: 20210115
  Transmission Date: 20210419
  Serious: Yes (Other)
  Sender: FDA-Public Use
  Company Number: TH-ROCHE-2743258

PATIENT
  Age: 63 Year
  Sex: Female

DRUGS (31)
  1. RANIBIZUMAB. [Suspect]
     Active Substance: RANIBIZUMAB
     Route: 065
     Dates: start: 201808
  2. BEVACIZUMAB. [Suspect]
     Active Substance: BEVACIZUMAB
     Route: 031
     Dates: start: 201710
  3. BEVACIZUMAB. [Suspect]
     Active Substance: BEVACIZUMAB
     Route: 031
     Dates: start: 201712
  4. AFLIBERCEPT [Suspect]
     Active Substance: AFLIBERCEPT
     Route: 031
     Dates: start: 201902
  5. AFLIBERCEPT [Suspect]
     Active Substance: AFLIBERCEPT
     Route: 031
     Dates: start: 201905
  6. AFLIBERCEPT [Suspect]
     Active Substance: AFLIBERCEPT
     Route: 031
     Dates: start: 202004
  7. AFLIBERCEPT [Suspect]
     Active Substance: AFLIBERCEPT
     Route: 031
     Dates: start: 202009
  8. AFLIBERCEPT [Suspect]
     Active Substance: AFLIBERCEPT
     Route: 031
     Dates: start: 202010
  9. AFLIBERCEPT [Suspect]
     Active Substance: AFLIBERCEPT
     Route: 031
     Dates: start: 202012
  10. AFLIBERCEPT [Suspect]
     Active Substance: AFLIBERCEPT
     Route: 031
     Dates: start: 202011
  11. RANIBIZUMAB. [Suspect]
     Active Substance: RANIBIZUMAB
     Indication: NEOVASCULAR AGE-RELATED MACULAR DEGENERATION
     Route: 065
     Dates: start: 201804
  12. AFLIBERCEPT [Suspect]
     Active Substance: AFLIBERCEPT
     Route: 031
     Dates: start: 202006
  13. RANIBIZUMAB. [Suspect]
     Active Substance: RANIBIZUMAB
     Route: 065
     Dates: start: 201806
  14. BEVACIZUMAB. [Suspect]
     Active Substance: BEVACIZUMAB
     Route: 031
     Dates: start: 201909
  15. AFLIBERCEPT [Suspect]
     Active Substance: AFLIBERCEPT
     Indication: NEOVASCULAR AGE-RELATED MACULAR DEGENERATION
     Route: 031
     Dates: start: 201809
  16. AFLIBERCEPT [Suspect]
     Active Substance: AFLIBERCEPT
     Route: 031
     Dates: start: 201812
  17. AFLIBERCEPT [Suspect]
     Active Substance: AFLIBERCEPT
     Route: 031
     Dates: start: 202007
  18. BEVACIZUMAB. [Suspect]
     Active Substance: BEVACIZUMAB
     Route: 031
     Dates: start: 201803
  19. BEVACIZUMAB. [Suspect]
     Active Substance: BEVACIZUMAB
     Route: 031
     Dates: start: 201912
  20. AFLIBERCEPT [Suspect]
     Active Substance: AFLIBERCEPT
     Route: 031
     Dates: start: 202008
  21. BEVACIZUMAB. [Suspect]
     Active Substance: BEVACIZUMAB
     Route: 031
     Dates: start: 201802
  22. AFLIBERCEPT [Suspect]
     Active Substance: AFLIBERCEPT
     Route: 031
     Dates: start: 201907
  23. BEVACIZUMAB. [Suspect]
     Active Substance: BEVACIZUMAB
     Indication: NEOVASCULAR AGE-RELATED MACULAR DEGENERATION
     Route: 031
     Dates: start: 201709
  24. BEVACIZUMAB. [Suspect]
     Active Substance: BEVACIZUMAB
     Route: 031
     Dates: start: 201801
  25. AFLIBERCEPT [Suspect]
     Active Substance: AFLIBERCEPT
     Route: 031
     Dates: start: 202005
  26. BEVACIZUMAB. [Suspect]
     Active Substance: BEVACIZUMAB
     Route: 031
     Dates: start: 201711
  27. AFLIBERCEPT [Suspect]
     Active Substance: AFLIBERCEPT
     Route: 031
     Dates: start: 201811
  28. AFLIBERCEPT [Suspect]
     Active Substance: AFLIBERCEPT
     Route: 031
     Dates: start: 201903
  29. AFLIBERCEPT [Suspect]
     Active Substance: AFLIBERCEPT
     Route: 031
     Dates: start: 202003
  30. AFLIBERCEPT [Suspect]
     Active Substance: AFLIBERCEPT
     Route: 031
     Dates: start: 201810
  31. AFLIBERCEPT [Suspect]
     Active Substance: AFLIBERCEPT
     Route: 031
     Dates: start: 201901

REACTIONS (2)
  - Subretinal fluid [Unknown]
  - Visual acuity reduced [Unknown]
